FAERS Safety Report 8200743-8 (Version None)
Quarter: 2012Q1

REPORT INFORMATION
  Report Type: 
  Country: None (occurrence: None)
  Receive Date: 20120306
  Receipt Date: 20120220
  Transmission Date: 20120608
  Serious: Yes (Hospitalization)
  Sender: FDA-Public Use
  Company Number: FK201200462

PATIENT
  Age: 41 Year
  Sex: Female

DRUGS (1)
  1. ADENOSINE [Suspect]
     Indication: CARDIOVERSION
     Dosage: 6 MG, INTRAVENOUS BOLUS
     Route: 040

REACTIONS (1)
  - ARTERIOSPASM CORONARY [None]
